FAERS Safety Report 19484048 (Version 1)
Quarter: 2021Q3

REPORT INFORMATION
  Report Type: Spontaneous
  Country: NL (occurrence: NL)
  Receive Date: 20210701
  Receipt Date: 20210701
  Transmission Date: 20211014
  Serious: Yes (Other)
  Sender: FDA-Public Use
  Company Number: NL-MYLANLABS-2021M1038308

PATIENT
  Sex: Male
  Weight: 90 kg

DRUGS (1)
  1. DEXAMETHASONE. [Suspect]
     Active Substance: DEXAMETHASONE
     Indication: CORONAVIRUS INFECTION
     Dosage: 6 MILLIGRAM, QD (1 TIME PER DAY 4 UNITS)
     Dates: start: 20210213

REACTIONS (4)
  - Off label use [Unknown]
  - Hallucination [Recovering/Resolving]
  - Insomnia [Recovering/Resolving]
  - Psychomotor hyperactivity [Recovering/Resolving]

NARRATIVE: CASE EVENT DATE: 20210213
